FAERS Safety Report 12423064 (Version 7)
Quarter: 2016Q4

REPORT INFORMATION
  Report Type: Spontaneous
  Country: US (occurrence: US)
  Receive Date: 20160601
  Receipt Date: 20161121
  Transmission Date: 20170207
  Serious: Yes (Hospitalization, Other)
  Sender: FDA-Public Use
  Company Number: US-PFIZER INC-2016264115

PATIENT
  Age: 69 Year
  Sex: Female
  Weight: 95.69 kg

DRUGS (23)
  1. ASA [Concomitant]
     Active Substance: ASPIRIN
     Dosage: 81 MG, UNK
  2. COREG [Concomitant]
     Active Substance: CARVEDILOL
     Dosage: 12.5 MG, 2X/DAY
  3. PLAVIX [Concomitant]
     Active Substance: CLOPIDOGREL BISULFATE
     Dosage: 75 MG, UNK
  4. ULTRAM [Concomitant]
     Active Substance: TRAMADOL HYDROCHLORIDE
     Dosage: 150 MG, AS NEEDED (THREE TIMES A DAY)
  5. SUTENT [Suspect]
     Active Substance: SUNITINIB MALATE
     Indication: RENAL CANCER
     Dosage: 37.5 MG, CYCLIC (DAYS 1-14  EVERY 21 DAYS / 14 DAYS ON, 7 DAYS OFF)
     Route: 048
     Dates: start: 20160218
  6. SUTENT [Suspect]
     Active Substance: SUNITINIB MALATE
     Dosage: UNK
     Dates: start: 20160920
  7. LIPITOR [Concomitant]
     Active Substance: ATORVASTATIN CALCIUM
     Dosage: 80 MG, UNK
  8. LANTUS [Concomitant]
     Active Substance: INSULIN GLARGINE
     Dosage: 40 IU, UNK (AT BREAKFAST)
  9. CERITINIB [Concomitant]
     Active Substance: CERITINIB
     Dosage: 1 DF, (37.5) DAILY
  10. SUTENT [Suspect]
     Active Substance: SUNITINIB MALATE
     Indication: RENAL CELL CARCINOMA
     Dosage: 37.5 MG, CYCLIC(14 DAYS ON 7 DAYS OFF)
     Route: 048
     Dates: start: 20160328
  11. LEVOTHYROXINE. [Concomitant]
     Active Substance: LEVOTHYROXINE
     Dosage: 88 UG, UNK (BEFORE BREAKFAST)
  12. COLCRYS [Concomitant]
     Active Substance: COLCHICINE
     Dosage: 0.6 MG, UNK
  13. ALLOPURINOL. [Concomitant]
     Active Substance: ALLOPURINOL
     Dosage: 200 MG, DAILY
  14. SUTENT [Suspect]
     Active Substance: SUNITINIB MALATE
     Indication: METASTATIC RENAL CELL CARCINOMA
     Dosage: 37.5 MG, CYCLIC (D1-D14 Q21D)
     Route: 048
     Dates: start: 20160210
  15. SUTENT [Suspect]
     Active Substance: SUNITINIB MALATE
     Dosage: 37.5 MG, CYCLIC (DAILY 14 DAYS ON, 7 DAYS OFF)
     Route: 048
     Dates: start: 20160328, end: 20160819
  16. COMPAZINE [Concomitant]
     Active Substance: PROCHLORPERAZINE MALEATE
     Dosage: 10 MG, AS NEEDED
  17. NOVOLOG [Concomitant]
     Active Substance: INSULIN ASPART
     Dosage: UNK (SLIDING SCALE)
  18. FISH OIL [Concomitant]
     Active Substance: FISH OIL
     Dosage: 1000 MG, DAILY
  19. ALLOPURINOL. [Concomitant]
     Active Substance: ALLOPURINOL
     Dosage: 100 MG, UNK
  20. COREG [Concomitant]
     Active Substance: CARVEDILOL
     Dosage: 125 MG, 2X/DAY
  21. LOSARTAN. [Concomitant]
     Active Substance: LOSARTAN
     Dosage: 100 MG, DAILY
  22. MUCINEX [Concomitant]
     Active Substance: GUAIFENESIN
     Dosage: UNK
  23. TYLENOL [Concomitant]
     Active Substance: ACETAMINOPHEN
     Dosage: 325 MG, AS NEEDED (TWICE A DAY)

REACTIONS (9)
  - Diarrhoea [Unknown]
  - Thyroid disorder [Unknown]
  - Dysgeusia [Unknown]
  - Coronary artery occlusion [Unknown]
  - Tongue discolouration [Unknown]
  - Acute myocardial infarction [Recovering/Resolving]
  - Blood pressure increased [Unknown]
  - Glossodynia [Unknown]
  - Tooth disorder [Unknown]

NARRATIVE: CASE EVENT DATE: 20160819
